FAERS Safety Report 21949384 (Version 4)
Quarter: 2023Q1

REPORT INFORMATION
  Report Type: Report from Study
  Country: US (occurrence: US)
  Receive Date: 20230203
  Receipt Date: 20230315
  Transmission Date: 20230417
  Serious: No
  Sender: FDA-Public Use
  Company Number: US-002147023-NVSC2023US023300

PATIENT
  Sex: Female

DRUGS (2)
  1. COSENTYX [Suspect]
     Active Substance: SECUKINUMAB
     Indication: Psoriatic arthropathy
     Dosage: 300 MG, QW
     Route: 058
  2. COSENTYX [Suspect]
     Active Substance: SECUKINUMAB
     Indication: Psoriasis
     Dosage: 300 MG, QMO
     Route: 058

REACTIONS (10)
  - Nausea [Recovered/Resolved]
  - Chest pain [Unknown]
  - Pyrexia [Unknown]
  - Nasopharyngitis [Unknown]
  - COVID-19 [Recovering/Resolving]
  - Cough [Unknown]
  - Psoriasis [Unknown]
  - Rash pruritic [Unknown]
  - Arthralgia [Unknown]
  - Therapeutic product effect incomplete [Unknown]
